FAERS Safety Report 23408761 (Version 1)
Quarter: 2024Q1

REPORT INFORMATION
  Report Type: Spontaneous
  Country: NL (occurrence: NL)
  Receive Date: 20240117
  Receipt Date: 20240117
  Transmission Date: 20240410
  Serious: Yes (Other)
  Sender: FDA-Public Use
  Company Number: None

PATIENT

DRUGS (6)
  1. CLOBETASOL [Suspect]
     Active Substance: CLOBETASOL
     Indication: Eczema
     Dosage: UNK
     Route: 065
  2. BETAMETHASONE VALERATE [Suspect]
     Active Substance: BETAMETHASONE VALERATE
     Indication: Eczema
     Dosage: UNK
     Route: 065
  3. CUTIVATE [Suspect]
     Active Substance: FLUTICASONE PROPIONATE
     Indication: Eczema
     Dosage: UNK
     Route: 065
  4. ELIDEL [Suspect]
     Active Substance: PIMECROLIMUS
     Indication: Eczema
     Dosage: UNK
     Route: 065
  5. HYDROCORTISONE ACETATE [Suspect]
     Active Substance: HYDROCORTISONE ACETATE
     Indication: Eczema
     Dosage: 1 DF (SEVERAL TIMES A DAY)
     Route: 065
     Dates: start: 20120101, end: 20210901
  6. PROTOPIC [Suspect]
     Active Substance: TACROLIMUS
     Indication: Eczema
     Dosage: UNK
     Route: 065

REACTIONS (5)
  - Steroid dependence [Recovering/Resolving]
  - Eczema [Recovering/Resolving]
  - Topical steroid withdrawal reaction [Recovering/Resolving]
  - Erythema [Recovering/Resolving]
  - Skin discharge [Recovering/Resolving]
